FAERS Safety Report 12744931 (Version 5)
Quarter: 2022Q1

REPORT INFORMATION
  Report Type: Report from Study
  Country: US (occurrence: None)
  Receive Date: 20160915
  Receipt Date: 20220216
  Transmission Date: 20220423
  Serious: Yes (Hospitalization, Other)
  Sender: FDA-Public Use
  Company Number: US-ROCHE-1826583

PATIENT
  Age: 80 Year
  Sex: Male
  Weight: 98.518 kg

DRUGS (1)
  1. ATEZOLIZUMAB [Suspect]
     Active Substance: ATEZOLIZUMAB
     Indication: Lung adenocarcinoma
     Dosage: CYCLE 5 14/OCT/2016
     Route: 041
     Dates: start: 20160714

REACTIONS (7)
  - Pneumonia [Recovered/Resolved]
  - Sepsis [Recovered/Resolved]
  - Asthenia [Recovered/Resolved]
  - Pyrexia [Unknown]
  - Vomiting [Unknown]
  - Infection [Recovered/Resolved]
  - Systemic inflammatory response syndrome [Recovered/Resolved]

NARRATIVE: CASE EVENT DATE: 20160727
